FAERS Safety Report 23586733 (Version 14)
Quarter: 2025Q4

REPORT INFORMATION
  Report Type: Spontaneous
  Country: US (occurrence: US)
  Receive Date: 20240301
  Receipt Date: 20251120
  Transmission Date: 20260118
  Serious: Yes (Other)
  Sender: PFIZER
  Company Number: US-PFIZER INC-PV202400027544

PATIENT
  Age: 62 Year
  Sex: Female
  Weight: 77.098 kg

DRUGS (19)
  1. IBRANCE [Suspect]
     Active Substance: PALBOCICLIB
     Indication: Hormone receptor positive HER2 negative breast cancer
     Dosage: 125 MG
     Dates: start: 2019
  2. IBRANCE [Suspect]
     Active Substance: PALBOCICLIB
     Dosage: 1X DAY 21 DAYS ON / 7 OFF
     Dates: start: 20210130
  3. IBRANCE [Suspect]
     Active Substance: PALBOCICLIB
     Dosage: 1XDAY 21 ON 7 OFF
     Dates: start: 202102
  4. IBRANCE [Suspect]
     Active Substance: PALBOCICLIB
     Dosage: DAILY ON DAYS 1-21 OUT OF A 28-DAY CYCLE
     Route: 048
  5. LETROZOLE [Suspect]
     Active Substance: LETROZOLE
     Indication: Breast cancer metastatic
     Dosage: UNK
     Dates: start: 2019
  6. LETROZOLE [Suspect]
     Active Substance: LETROZOLE
     Dosage: 2.5 MG, 1X/DAY
     Dates: start: 20210130
  7. LETROZOLE [Suspect]
     Active Substance: LETROZOLE
     Dosage: 2.5 MG, 1X/DAY
     Dates: start: 202102
  8. BERBERINE [Concomitant]
     Active Substance: BERBERINE
     Dosage: UNK
     Dates: start: 202301
  9. COENZYME Q10 [Concomitant]
     Active Substance: DIETARY SUPPLEMENT\UBIDECARENONE
     Dosage: UNK
     Dates: start: 20210515
  10. TEA [Concomitant]
     Active Substance: TEA LEAF
     Dosage: UNK
     Dates: start: 20210515
  11. LYSINE [Concomitant]
     Active Substance: LYSINE
     Dosage: UNK
     Dates: start: 20210515
  12. MAGNESIUM [Concomitant]
     Active Substance: MAGNESIUM
     Dosage: UNK
  13. MAGNESIUM GLYCINATE [Concomitant]
     Active Substance: MAGNESIUM GLYCINATE
     Dosage: UNK
     Dates: start: 20210515
  14. MAGNESIUM GLYCINATE [Concomitant]
     Active Substance: MAGNESIUM GLYCINATE
     Dosage: UNK
     Dates: start: 202106
  15. MELATONIN [Concomitant]
     Active Substance: MELATONIN
     Dosage: UNK
     Dates: start: 20210515
  16. OMEGA 3 [Concomitant]
     Active Substance: CAPSAICIN
     Dosage: UNK
     Dates: start: 20210515
  17. VITAMIN B12 [Concomitant]
     Active Substance: CYANOCOBALAMIN
     Dosage: UNK
     Dates: start: 201705
  18. ZINC [Concomitant]
     Active Substance: ZINC
     Dosage: UNK
     Dates: start: 201705
  19. ZINC [Concomitant]
     Active Substance: ZINC
     Dosage: UNK
     Dates: start: 20210515

REACTIONS (24)
  - Neutropenia [Recovered/Resolved]
  - Lymphoid tissue operation [Unknown]
  - Osteomyelitis [Unknown]
  - Arthralgia [Not Recovered/Not Resolved]
  - White blood cell count decreased [Recovered/Resolved]
  - Pain [Not Recovered/Not Resolved]
  - Vision blurred [Not Recovered/Not Resolved]
  - Alopecia [Recovered/Resolved]
  - Osteopenia [Not Recovered/Not Resolved]
  - Dyspepsia [Recovering/Resolving]
  - Rhinorrhoea [Not Recovered/Not Resolved]
  - COVID-19 [Unknown]
  - Lymphoedema [Recovered/Resolved]
  - Memory impairment [Unknown]
  - Blood test abnormal [Unknown]
  - Red blood cell count decreased [Unknown]
  - Inflammation [Unknown]
  - Stress [Unknown]
  - Abdominal distension [Unknown]
  - Fatigue [Unknown]
  - Hot flush [Unknown]
  - Memory impairment [Unknown]
  - Back pain [Recovering/Resolving]
  - Muscular weakness [Recovering/Resolving]

NARRATIVE: CASE EVENT DATE: 20210201
